FAERS Safety Report 9789095 (Version 2)
Quarter: 2015Q2

REPORT INFORMATION
  Report Type: Spontaneous
  Country: AU (occurrence: AU)
  Receive Date: 20131230
  Receipt Date: 20150512
  Transmission Date: 20150821
  Serious: Yes (Hospitalization)
  Sender: FDA-Public Use
  Company Number: PHHY2013AU151657

PATIENT
  Age: 73 Year
  Sex: Male
  Weight: 80 kg

DRUGS (5)
  1. METFORMIN [Concomitant]
     Active Substance: METFORMIN HYDROCHLORIDE
     Indication: TYPE 2 DIABETES MELLITUS
     Route: 065
  2. WARFARIN [Concomitant]
     Active Substance: WARFARIN
     Indication: PRODUCT USED FOR UNKNOWN INDICATION
     Route: 065
  3. GLICLAZIDE [Concomitant]
     Active Substance: GLICLAZIDE
     Indication: TYPE 2 DIABETES MELLITUS
     Route: 065
  4. SOTALOL. [Suspect]
     Active Substance: SOTALOL
     Indication: ATRIAL FLUTTER
     Dosage: 40 MG, BID
     Route: 048
  5. SOTALOL. [Suspect]
     Active Substance: SOTALOL
     Dosage: 80 MG, UNK
     Route: 048

REACTIONS (10)
  - Hypoperfusion [Unknown]
  - Nausea [Unknown]
  - Blood pressure systolic decreased [Recovered/Resolved]
  - Hyperhidrosis [Unknown]
  - Asthenia [Unknown]
  - Left ventricular dysfunction [Recovered/Resolved]
  - Malaise [Unknown]
  - Chest pain [Unknown]
  - Bradycardia [Unknown]
  - Cardiogenic shock [Unknown]
